FAERS Safety Report 8336935-7 (Version None)
Quarter: 2012Q2

REPORT INFORMATION
  Report Type: 
  Country: None (occurrence: None)
  Receive Date: 20120504
  Receipt Date: 20120113
  Transmission Date: 20120825
  Serious: No
  Sender: FDA-Public Use
  Company Number: US-GLAXOSMITHKLINE-A0961417A

PATIENT
  Sex: Female

DRUGS (4)
  1. CLARITIN [Concomitant]
  2. PRILOSEC [Concomitant]
  3. HORIZANT [Suspect]
     Indication: RESTLESS LEGS SYNDROME
     Dosage: 600MG PER DAY
     Route: 048
     Dates: start: 20111205
  4. VITAMIN TAB [Concomitant]

REACTIONS (4)
  - DYSKINESIA [None]
  - MUSCLE SPASMS [None]
  - PAIN IN EXTREMITY [None]
  - INSOMNIA [None]
